FAERS Safety Report 15577829 (Version 1)
Quarter: 2018Q4

REPORT INFORMATION
  Report Type: Spontaneous
  Country: DE (occurrence: DE)
  Receive Date: 20181102
  Receipt Date: 20181102
  Transmission Date: 20190205
  Serious: Yes (Hospitalization)
  Sender: FDA-Public Use
  Company Number: DE-PURDUE PHARMA-GBR-2018-0060976

PATIENT
  Age: 71 Year
  Sex: Female
  Weight: 88 kg

DRUGS (1)
  1. TARGIN [Suspect]
     Active Substance: NALOXONE HYDROCHLORIDE\OXYCODONE HYDROCHLORIDE
     Indication: BACK PAIN
     Dosage: UNK
     Route: 048
     Dates: start: 2006

REACTIONS (5)
  - Bronchitis chronic [Unknown]
  - Cough [Unknown]
  - Night sweats [Unknown]
  - Hot flush [Unknown]
  - Body temperature increased [Unknown]

NARRATIVE: CASE EVENT DATE: 200611
